FAERS Safety Report 5248056-0 (Version None)
Quarter: 2007Q1

REPORT INFORMATION
  Report Type: 
  Country: None (occurrence: None)
  Receive Date: 20070227
  Receipt Date: 20070227
  Transmission Date: 20070707
  Serious: Yes (Death)
  Sender: FDA-Public Use
  Company Number: ES-BRISTOL-MYERS SQUIBB COMPANY-13673223

PATIENT
  Age: 75 Year
  Sex: Male

DRUGS (3)
  1. SINEMET [Suspect]
     Dates: end: 20060101
  2. NEURONTIN [Suspect]
     Route: 048
     Dates: end: 20060101
  3. CIPRALEX [Suspect]
     Dates: end: 20060101

REACTIONS (2)
  - NEUROLEPTIC MALIGNANT SYNDROME [None]
  - RESPIRATORY ARREST [None]
